FAERS Safety Report 4261862-4 (Version None)
Quarter: 2004Q1

REPORT INFORMATION
  Report Type: 
  Country: None (occurrence: None)
  Receive Date: 20040102
  Receipt Date: 20020402
  Transmission Date: 20041129
  Serious: Yes (Hospitalization)
  Sender: FDA-Public Use
  Company Number: PHEH2002US03232

PATIENT
  Age: 72 Year
  Sex: Female

DRUGS (10)
  1. VALSARTAN +/-HCTZ VS AMLODIPINE +/-HCTZ [Suspect]
     Indication: ESSENTIAL HYPERTENSION
     Dosage: LEVEL 1
     Route: 048
     Dates: start: 19980619, end: 19980716
  2. VALSARTAN +/-HCTZ VS AMLODIPINE +/-HCTZ [Suspect]
     Dosage: LEVEL 2
     Route: 048
     Dates: start: 19980717, end: 19980804
  3. VALSARTAN +/-HCTZ VS AMLODIPINE +/-HCTZ [Suspect]
     Dosage: LEVEL 3
     Route: 048
     Dates: start: 19980805, end: 19980817
  4. VALSARTAN +/-HCTZ VS AMLODIPINE +/-HCTZ [Suspect]
     Dosage: LEVEL 4
     Route: 048
     Dates: start: 19980818, end: 19980917
  5. VALSARTAN +/-HCTZ VS AMLODIPINE +/-HCTZ [Suspect]
     Dosage: LEVEL 5
     Route: 048
     Dates: start: 19980918, end: 20011021
  6. VALSARTAN +/-HCTZ VS AMLODIPINE +/-HCTZ [Suspect]
     Dosage: NO TREATMENT
     Dates: start: 20011022
  7. ESIDRIX [Suspect]
     Indication: ESSENTIAL HYPERTENSION
     Dosage: 12.5 MG, LEVEL 3
     Route: 048
     Dates: start: 19980805, end: 19980817
  8. ESIDRIX [Suspect]
     Dosage: 25 MG, LEVEL 4 + 5
     Route: 048
     Dates: start: 19980818, end: 20011021
  9. ESIDRIX [Suspect]
     Dosage: NO TREATMENT
     Dates: start: 20011022
  10. COUMADIN [Concomitant]
     Indication: CARDIAC FAILURE CONGESTIVE

REACTIONS (17)
  - ATRIAL FIBRILLATION [None]
  - CARDIAC FAILURE CONGESTIVE [None]
  - CARDIOMEGALY [None]
  - COUGH [None]
  - DRUG TOXICITY [None]
  - DYSPNOEA [None]
  - GASTROINTESTINAL HAEMORRHAGE [None]
  - HYPOKALAEMIA [None]
  - PNEUMONIA [None]
  - PULMONARY EMBOLISM [None]
  - PULMONARY OEDEMA [None]
  - PYREXIA [None]
  - RENAL FAILURE [None]
  - SPUTUM DISCOLOURED [None]
  - THERAPEUTIC AGENT TOXICITY [None]
  - THROMBOCYTOPENIA [None]
  - URINARY TRACT INFECTION [None]
